FAERS Safety Report 5547779-3 (Version None)
Quarter: 2007Q4

REPORT INFORMATION
  Report Type: 
  Country: None (occurrence: None)
  Receive Date: 20071211
  Receipt Date: 20070302
  Transmission Date: 20080405
  Serious: No
  Sender: FDA-Public Use
  Company Number: US-AMGEN-KDL213453

PATIENT
  Sex: Female

DRUGS (1)
  1. ENBREL [Suspect]
     Indication: RHEUMATOID ARTHRITIS
     Dates: start: 20060601

REACTIONS (3)
  - HEPATIC ENZYME INCREASED [None]
  - INSOMNIA [None]
  - RHEUMATOID ARTHRITIS [None]
